FAERS Safety Report 11512823 (Version 1)
Quarter: 2015Q3

REPORT INFORMATION
  Report Type: Spontaneous
  Country: US (occurrence: None)
  Receive Date: 20150915
  Receipt Date: 20150915
  Transmission Date: 20151125
  Serious: No
  Sender: FDA-Public Use
  Company Number: None

PATIENT
  Age: 72 Year
  Sex: Female
  Weight: 44.14 kg

DRUGS (9)
  1. METFORMIN HYDROCHLORIDE. [Suspect]
     Active Substance: METFORMIN HYDROCHLORIDE
     Dates: end: 20150908
  2. CELEXA [Concomitant]
     Active Substance: CITALOPRAM HYDROBROMIDE
  3. REMERON [Concomitant]
     Active Substance: MIRTAZAPINE
  4. SENNA/DOCUSATE(SENOKOT-S) [Concomitant]
  5. LOVENOX [Concomitant]
     Active Substance: ENOXAPARIN SODIUM
  6. LEVOTHYROXINE (LEVOXYL OR SYNTHROID) [Concomitant]
  7. ZOFRAN [Concomitant]
     Active Substance: ONDANSETRON HYDROCHLORIDE
  8. OXYBUTYNIN (DITROPAN) [Concomitant]
  9. BUPROPION XL, 24HR (WELLBUTRIN XL) [Concomitant]

REACTIONS (1)
  - Weight decreased [None]

NARRATIVE: CASE EVENT DATE: 20150707
